FAERS Safety Report 8824644 (Version 1)
Quarter: 2012Q4

REPORT INFORMATION
  Report Type: 
  Country: FR (occurrence: FR)
  Receive Date: 20121004
  Receipt Date: 20121004
  Transmission Date: 20130627
  Serious: Yes (Hospitalization, Other)
  Sender: FDA-Public Use
  Company Number: PHHY2012FR084954

PATIENT
  Age: 67 Year
  Sex: Male

DRUGS (4)
  1. AFINITOR [Suspect]
     Dosage: 10 mg
     Route: 048
     Dates: start: 20120604, end: 20120619
  2. SOMATULINE [Concomitant]
     Dosage: 120 mg
  3. CLASTOBAN [Concomitant]
     Dosage: 800 mg
  4. AXELER [Concomitant]
     Dosage: 40/10mg once daily

REACTIONS (8)
  - Hepatocellular injury [Unknown]
  - Rash [Recovered/Resolved]
  - Pyrexia [Unknown]
  - Crepitations [Unknown]
  - Skin plaque [Recovered/Resolved]
  - Thrombocytopenia [Unknown]
  - Lymphopenia [Recovered/Resolved]
  - Genital herpes [Recovered/Resolved]
